FAERS Safety Report 6874571-X (Version None)
Quarter: 2010Q2

REPORT INFORMATION
  Report Type: 
  Country: None (occurrence: None)
  Receive Date: 20100609
  Receipt Date: 20090629
  Transmission Date: 20101027
  Serious: No
  Sender: FDA-Public Use
  Company Number: 2009-00544

PATIENT
  Age: 70 Year
  Sex: Female
  Weight: 68.0396 kg

DRUGS (8)
  1. ZICAM COLD REMEDY NASAL GEL [Suspect]
     Dosage: SPORADIC X 2-3 MONTHS; WINTER 2008-2009
     Dates: start: 20080101, end: 20090101
  2. ZICAM COLD REMEDY GEL SWABS [Suspect]
     Dosage: SPORADIC X 2-3 MONTH; WINTER 2008-2009
     Dates: start: 20080101, end: 20090101
  3. ZOLOFT [Concomitant]
  4. PROZAC [Concomitant]
  5. ZYRTEC [Concomitant]
  6. KENALOG [Concomitant]
  7. ALBUTEROL [Concomitant]
  8. ALBUTEROL 2 MG/NEBULIZER [Concomitant]

REACTIONS (1)
  - ANOSMIA [None]
